FAERS Safety Report 9970297 (Version 1)
Quarter: 2014Q1

REPORT INFORMATION
  Report Type: Spontaneous
  Country: JP (occurrence: JP)
  Receive Date: 20140306
  Receipt Date: 20140306
  Transmission Date: 20141002
  Serious: Yes (Life-Threatening, Other)
  Sender: FDA-Public Use
  Company Number: JP-KOWA-2014S1000237

PATIENT
  Age: 63 Year
  Sex: Female
  Weight: 63 kg

DRUGS (5)
  1. LIVALO [Suspect]
     Indication: TYPE 2 DIABETES MELLITUS
     Route: 048
     Dates: end: 20130524
  2. ALOGLIPTIN BENZOATE [Suspect]
     Indication: TYPE 2 DIABETES MELLITUS
     Route: 048
     Dates: start: 20121205, end: 20130524
  3. PIOGLITAZONE [Suspect]
     Indication: TYPE 2 DIABETES MELLITUS
     Route: 048
     Dates: end: 20130524
  4. MICARDIS [Concomitant]
     Route: 048
     Dates: end: 20130524
  5. GLIMEPIRIDE [Concomitant]
     Route: 048
     Dates: start: 20130130, end: 20130524

REACTIONS (1)
  - Pancreatic carcinoma [Not Recovered/Not Resolved]
